FAERS Safety Report 6655149-X (Version None)
Quarter: 2010Q1

REPORT INFORMATION
  Report Type: 
  Country: None (occurrence: None)
  Receive Date: 20100317
  Receipt Date: 20100202
  Transmission Date: 20100710
  Serious: No
  Sender: FDA-Public Use
  Company Number: DSA_42549_2010

PATIENT
  Sex: Female

DRUGS (17)
  1. XENAZINE [Suspect]
     Indication: TARDIVE DYSKINESIA
     Dosage: 12.5 MG QD ORAL
     Route: 048
     Dates: start: 20100128
  2. THEOPHYLLINE [Concomitant]
  3. ZYRTEC-D 12 HOUR [Concomitant]
  4. ACCOLATE [Concomitant]
  5. DIGOXIN [Concomitant]
  6. SERTRALINE HCL [Concomitant]
  7. ARICEPT [Concomitant]
  8. POTASSIUM [Concomitant]
  9. VERAPAMIL [Concomitant]
  10. FUROSEMIDE [Concomitant]
  11. DETROL LA [Concomitant]
  12. ARTANE [Concomitant]
  13. MIRALAX [Concomitant]
  14. PREDNISONE [Concomitant]
  15. VITAMINS NOS [Concomitant]
  16. ALBUTEROL [Concomitant]
  17. NEBULIZER [Concomitant]

REACTIONS (1)
  - DRUG INEFFECTIVE FOR UNAPPROVED INDICATION [None]
